FAERS Safety Report 24403858 (Version 1)
Quarter: 2024Q4

REPORT INFORMATION
  Report Type: Report from Study
  Country: IT (occurrence: IT)
  Receive Date: 20241007
  Receipt Date: 20241007
  Transmission Date: 20250115
  Serious: No
  Sender: ROCHE
  Company Number: IT-ROCHE-2876405

PATIENT
  Age: 52 Year
  Sex: Female

DRUGS (6)
  1. OBINUTUZUMAB [Suspect]
     Active Substance: OBINUTUZUMAB
     Indication: Follicular lymphoma
     Dosage: INDUCTION 1: 10-JUN-20, INDUCTION 2: 06-JUL-20, INDUCTION 3: 03-AUG-20, INDUCTION 4: 31-AUG-20, INDU
     Route: 042
     Dates: start: 20200608
  2. OBINUTUZUMAB [Suspect]
     Active Substance: OBINUTUZUMAB
     Dosage: MAINTENANCE 1: 30-DEC-20, MAINTENANCE 2: 01-MAR-21?MAINTENANCE 3: 03-MAY-21, MAINTENANCE 4: 02-JUL-2
     Route: 042
     Dates: start: 20201230
  3. BENDAMUSTINE [Concomitant]
     Active Substance: BENDAMUSTINE
     Dosage: BENDA ADMINISTERED 2 DAYS BEFORE
     Route: 065
     Dates: start: 20200608
  4. LEVOTHYROXINE SODIUM [Concomitant]
     Active Substance: LEVOTHYROXINE SODIUM
     Dates: start: 20180101
  5. DEURSIL [Concomitant]
     Active Substance: URSODIOL
     Dates: start: 20180101
  6. DIAMICRON [Concomitant]
     Dates: start: 20150101

REACTIONS (9)
  - Paraesthesia [Recovered/Resolved]
  - Blood glucose increased [Recovered/Resolved]
  - Mucosal inflammation [Recovered/Resolved]
  - Decreased appetite [Recovered/Resolved]
  - Serum ferritin decreased [Recovered/Resolved]
  - Weight decreased [Recovered/Resolved]
  - Blood uric acid increased [Recovered/Resolved]
  - Blood cholesterol increased [Recovered/Resolved]
  - Osteoarthritis [Not Recovered/Not Resolved]

NARRATIVE: CASE EVENT DATE: 20200622
